FAERS Safety Report 13763902 (Version 1)
Quarter: 2017Q3

REPORT INFORMATION
  Report Type: Spontaneous
  Country: US (occurrence: US)
  Receive Date: 20170718
  Receipt Date: 20170718
  Transmission Date: 20171127
  Serious: No
  Sender: FDA-Public Use
  Company Number: US-LYNE LABORATORIES INC.-2023442

PATIENT
  Age: 11 Year
  Sex: Male

DRUGS (1)
  1. CYPROHEPTADINE HYDROCHLORIDE. [Suspect]
     Active Substance: CYPROHEPTADINE HYDROCHLORIDE
     Indication: INCREASED APPETITE
     Route: 048

REACTIONS (1)
  - Irritability [Unknown]
